FAERS Safety Report 4509772-9 (Version None)
Quarter: 2004Q4

REPORT INFORMATION
  Report Type: 
  Country: None (occurrence: None)
  Receive Date: 20041124
  Receipt Date: 20040220
  Transmission Date: 20050328
  Serious: No
  Sender: FDA-Public Use
  Company Number: US-BRISTOL-MYERS SQUIBB COMPANY-12513602

PATIENT
  Age: 42 Year
  Sex: Female
  Weight: 91 kg

DRUGS (2)
  1. AVALIDE [Suspect]
     Indication: HYPERTENSION
     Route: 048
     Dates: start: 20001101, end: 20040216
  2. ASPIRIN [Concomitant]

REACTIONS (1)
  - ANGIONEUROTIC OEDEMA [None]
